FAERS Safety Report 7842786-X (Version None)
Quarter: 2011Q4

REPORT INFORMATION
  Report Type: 
  Country: None (occurrence: None)
  Receive Date: 20111025
  Receipt Date: 20100831
  Transmission Date: 20120403
  Serious: No
  Sender: FDA-Public Use
  Company Number: US-BAYER-201032335NA

PATIENT

DRUGS (1)
  1. CIPROFLOXACIN [Suspect]
     Dosage: UNK
     Route: 013
     Dates: start: 20100831

REACTIONS (1)
  - MEDICATION ERROR [None]
